FAERS Safety Report 10279148 (Version 1)
Quarter: 2014Q3

REPORT INFORMATION
  Report Type: Spontaneous
  Country: GB (occurrence: GB)
  Receive Date: 20140707
  Receipt Date: 20140707
  Transmission Date: 20150326
  Serious: Yes (Other)
  Sender: FDA-Public Use
  Company Number: GB-ACCORD-024571

PATIENT
  Age: 78 Year
  Sex: Female

DRUGS (2)
  1. AZATHIOPRINE MYLAN [Concomitant]
     Active Substance: AZATHIOPRINE
     Indication: PRODUCT USED FOR UNKNOWN INDICATION
  2. AMLODIPINE [Suspect]
     Active Substance: AMLODIPINE BESYLATE
     Indication: PRODUCT USED FOR UNKNOWN INDICATION
     Dosage: WAS PRESCRIBED ABOUT ONE YEAR AGO ON AROUND THE 1ST JULY.
     Route: 048

REACTIONS (3)
  - Joint swelling [Unknown]
  - Eyelid oedema [Unknown]
  - Peripheral swelling [Unknown]
